FAERS Safety Report 7217556 (Version 2)
Quarter: 2014Q3

REPORT INFORMATION
  Report Type: Spontaneous
  Country: US (occurrence: None)
  Receive Date: 20091201
  Receipt Date: 20140926
  Transmission Date: 20150326
  Serious: Yes (Other)
  Sender: FDA-Public Use
  Company Number: 2009S1008591

PATIENT
  Age: 66 Year
  Sex: Female

DRUGS (7)
  1. LISINOPRIL. [Concomitant]
     Active Substance: LISINOPRIL
  2. PROTONIX [Concomitant]
     Active Substance: PANTOPRAZOLE SODIUM
  3. ZANTEC (RANITIDINE) [Concomitant]
  4. PHOSPHO-SODA [Suspect]
     Active Substance: SODIUM PHOSPHATE, DIBASIC\SODIUM PHOSPHATE, MONOBASIC
     Indication: COLONOSCOPY
     Route: 048
     Dates: start: 20041024, end: 20041025
  5. HYDROCHLOROTHIAZIDE. [Concomitant]
     Active Substance: HYDROCHLOROTHIAZIDE
  6. BEXTRA (PARECOXIB SODIUM) [Concomitant]
     Active Substance: PARECOXIB SODIUM
  7. FOSAMAX [Concomitant]
     Active Substance: ALENDRONATE SODIUM

REACTIONS (13)
  - Leukocytosis [None]
  - Nephrogenic anaemia [None]
  - Bipolar disorder [None]
  - Hydronephrosis [None]
  - Inappropriate antidiuretic hormone secretion [None]
  - Decreased appetite [None]
  - Nausea [None]
  - Hyponatraemia [None]
  - Renal failure chronic [None]
  - Vomiting [None]
  - Renal failure acute [None]
  - Suicidal ideation [None]
  - Hypomagnesaemia [None]

NARRATIVE: CASE EVENT DATE: 20041029
